FAERS Safety Report 7967329-1 (Version None)
Quarter: 2011Q4

REPORT INFORMATION
  Report Type: 
  Country: None (occurrence: None)
  Receive Date: 20111209
  Receipt Date: 20111125
  Transmission Date: 20120403
  Serious: Yes (Other)
  Sender: FDA-Public Use
  Company Number: KE-MYLANLABS-2011S1024727

PATIENT
  Sex: Female

DRUGS (4)
  1. TACROLIMUS [Suspect]
     Indication: IMMUNOSUPPRESSION
     Route: 064
  2. LEVOTHYROXINE SODIUM [Concomitant]
     Indication: THYROID HORMONE REPLACEMENT THERAPY
     Route: 064
  3. CYCLOSPORINE [Suspect]
     Indication: IMMUNOSUPPRESSION
     Route: 064
  4. PREDNISOLONE [Suspect]
     Indication: IMMUNOSUPPRESSION
     Route: 064

REACTIONS (7)
  - CEREBRAL VENTRICLE DILATATION [None]
  - PARTIAL SEIZURES [None]
  - OLIGOHYDRAMNIOS [None]
  - FOETAL GROWTH RESTRICTION [None]
  - CEREBRAL ATROPHY [None]
  - HYPOXIC-ISCHAEMIC ENCEPHALOPATHY [None]
  - MATERNAL EXPOSURE DURING PREGNANCY [None]
